FAERS Safety Report 9465221 (Version 1)
Quarter: 2013Q3

REPORT INFORMATION
  Report Type: Spontaneous
  Country: US (occurrence: US)
  Receive Date: 20130819
  Receipt Date: 20130819
  Transmission Date: 20140515
  Serious: Yes (Other)
  Sender: FDA-Public Use
  Company Number: US-JNJFOC-20130803582

PATIENT
  Sex: Female

DRUGS (2)
  1. ZYRTEC 10MG IR TABLET BONUS 30+10 USA [Suspect]
     Route: 048
  2. ZYRTEC 10MG IR TABLET BONUS 30+10 USA [Suspect]
     Indication: MULTIPLE ALLERGIES
     Route: 048

REACTIONS (2)
  - Nightmare [Unknown]
  - Fatigue [Unknown]
